FAERS Safety Report 8953015 (Version 2)
Quarter: 2013Q1

REPORT INFORMATION
  Report Type: Spontaneous
  Country: CH (occurrence: CH)
  Receive Date: 20121205
  Receipt Date: 20130213
  Transmission Date: 20140127
  Serious: Yes (Death, Other)
  Sender: FDA-Public Use
  Company Number: PHHY2012CH110966

PATIENT
  Age: 90 Year
  Sex: Female

DRUGS (5)
  1. DICLOFENAC [Suspect]
     Indication: ARTHRALGIA
     Dosage: UNK UKN, UNK
  2. ASPIRIN [Concomitant]
     Dosage: UNK UKN, UNK
  3. ALLOPURINOL [Concomitant]
     Dosage: UNK UKN, UNK
  4. TORASEMID [Concomitant]
     Dosage: UNK UKN, UNK
  5. VALSARTAN [Concomitant]
     Dosage: UNK UKN, UNK

REACTIONS (13)
  - Cardiac failure [Fatal]
  - Linear IgA disease [Recovering/Resolving]
  - Hypopyon [Recovering/Resolving]
  - Pemphigus [Recovering/Resolving]
  - Scab [Recovering/Resolving]
  - Lip erosion [Recovering/Resolving]
  - Rash pustular [Recovering/Resolving]
  - Neutrophilic dermatosis [Recovering/Resolving]
  - Subcorneal pustular dermatosis [Recovering/Resolving]
  - Rash generalised [Recovering/Resolving]
  - Skin lesion [Recovering/Resolving]
  - Blister [Recovering/Resolving]
  - Lip haemorrhage [Recovering/Resolving]
